FAERS Safety Report 7435385-5 (Version None)
Quarter: 2011Q2

REPORT INFORMATION
  Report Type: 
  Country: None (occurrence: None)
  Receive Date: 20110415
  Receipt Date: 20110413
  Transmission Date: 20111010
  Serious: Yes (Death, Life-Threatening, Hospitalization)
  Sender: FDA-Public Use
  Company Number: 2011SP010175

PATIENT
  Sex: Female

DRUGS (2)
  1. MENOPUR [Suspect]
     Indication: PRODUCT USED FOR UNKNOWN INDICATION
  2. FOLLISTIM AQ [Suspect]
     Indication: PRODUCT USED FOR UNKNOWN INDICATION

REACTIONS (1)
  - ISCHAEMIC STROKE [None]
